FAERS Safety Report 10483030 (Version 3)
Quarter: 2022Q1

REPORT INFORMATION
  Report Type: Spontaneous
  Country: JP (occurrence: JP)
  Receive Date: 20140930
  Receipt Date: 20220318
  Transmission Date: 20220424
  Serious: Yes (Death, Other)
  Sender: FDA-Public Use
  Company Number: JP-CHUGAI-A2014043676ROCHE

PATIENT
  Age: 87 Year
  Sex: Male
  Weight: 63 kg

DRUGS (6)
  1. AVASTIN [Suspect]
     Active Substance: BEVACIZUMAB
     Indication: Colon cancer
     Route: 041
     Dates: start: 20140425, end: 20140627
  2. OXALIPLATIN [Suspect]
     Active Substance: OXALIPLATIN
     Indication: Colon cancer
     Route: 041
     Dates: start: 20140425, end: 20140627
  3. CLARITHROMYCIN [Concomitant]
     Active Substance: CLARITHROMYCIN
     Dosage: DOSAGE IS UNCERTAIN.
     Route: 065
     Dates: start: 20140731, end: 20140803
  4. ALOXI [Concomitant]
     Active Substance: PALONOSETRON HYDROCHLORIDE
     Route: 065
  5. DECADRON [Concomitant]
     Active Substance: DEXAMETHASONE
     Route: 065
  6. TS-1 [Concomitant]
     Active Substance: GIMERACIL\OTERACIL\TEGAFUR
     Indication: Colon cancer
     Route: 048
     Dates: start: 20140425, end: 20140711

REACTIONS (8)
  - Disseminated intravascular coagulation [Fatal]
  - Interstitial lung disease [Fatal]
  - Multiple organ dysfunction syndrome [Fatal]
  - Thrombosis [Unknown]
  - Arteriosclerosis [Unknown]
  - Lipoma [Unknown]
  - Adenoma benign [Unknown]
  - Lymphadenopathy [Unknown]

NARRATIVE: CASE EVENT DATE: 20140718
